FAERS Safety Report 10650909 (Version 1)
Quarter: 2014Q4

REPORT INFORMATION
  Report Type: Spontaneous
  Country: IT (occurrence: IT)
  Receive Date: 20141215
  Receipt Date: 20141215
  Transmission Date: 20150529
  Serious: Yes (Other)
  Sender: FDA-Public Use
  Company Number: IT-009507513-1412ITA005430

PATIENT
  Age: 63 Year
  Sex: Male

DRUGS (1)
  1. FORZAAR 100 MG + 25 MG COMPRESSE RIVESTITE CON FILM [Suspect]
     Active Substance: HYDROCHLOROTHIAZIDE\LOSARTAN POTASSIUM
     Indication: HYPERTENSION
     Dosage: TOTAL DAILY DOSE 100MG+25MG,DAILY
     Route: 048
     Dates: start: 20141110, end: 20141119

REACTIONS (2)
  - Hypertensive crisis [Recovering/Resolving]
  - No therapeutic response [Recovering/Resolving]

NARRATIVE: CASE EVENT DATE: 20141119
